FAERS Safety Report 9316321 (Version 1)
Quarter: 2013Q2

REPORT INFORMATION
  Report Type: Spontaneous
  Country: JP (occurrence: None)
  Receive Date: 20130522
  Receipt Date: 20130522
  Transmission Date: 20140414
  Serious: Yes (Hospitalization)
  Sender: FDA-Public Use
  Company Number: METF20130005

PATIENT
  Age: 55 Year
  Sex: Female

DRUGS (6)
  1. METFORMIN HYDROCHLORIDE [Suspect]
     Indication: DIABETES MELLITUS
     Dosage: (1IN 1 D)
     Route: 048
  2. AMLODIPINE BESYLATE TABLETS 5MG (AMLODIPINE BESILATE) (5 MILLIGRAM, TABLETS) (AMLODIPINE BESILATE) [Concomitant]
  3. OLMESARTAN (OLMESARTAN) (50 MILLIGRAM, UNKNONWN) (SITAGLIPTIN) [Concomitant]
  4. SITAGLIPTIN (SITAGLIPTIN) (50 MMILLIGRAM, UNKNOWN) (SITAGLIPTIN) [Concomitant]
  5. VITAMIN B C COMPLEX (ASCORBIC ACID, PYRIDOXINE HYDROCHLORIDE, THIAMINE HYDROCHLORIDE, NICOTINAMIDE, RIBOFLAVIN SODIUM PHOSPHATE) (UNKNOWN) (ASCORBIC ACID, PYRIDOXINE HYDROCHLORIDE, THIAMINE HYDROCHLORIDE, NICOTINAMIDE, RIBOFLAVIN SODIUM PHOSPHATE) [Concomitant]
  6. FERRIC HYDROXIDE POLYMALTOSE COMPLEX (FERRIC HYDROXIDE POLYMALTOSE COMPLEX) (357 MILLIGRAM, UNKNOWN) (FERRIC HYDROXIDE POLYMALTOSE COMPLEX) [Concomitant]

REACTIONS (1)
  - Encephalopathy [None]
